FAERS Safety Report 8093394-X (Version None)
Quarter: 2012Q1

REPORT INFORMATION
  Report Type: 
  Country: None (occurrence: None)
  Receive Date: 20120131
  Receipt Date: 20120126
  Transmission Date: 20120608
  Serious: Yes (Other)
  Sender: FDA-Public Use
  Company Number: US-PFIZER INC-2012023109

PATIENT
  Sex: Female

DRUGS (2)
  1. MISOPROSTOL [Suspect]
     Dosage: 200 UG, UNK
  2. LIDODERM [Suspect]
     Dosage: UNK

REACTIONS (1)
  - COELIAC DISEASE [None]
